FAERS Safety Report 9794626 (Version 1)
Quarter: 2014Q1

REPORT INFORMATION
  Report Type: Spontaneous
  Country: US (occurrence: US)
  Receive Date: 20140102
  Receipt Date: 20140102
  Transmission Date: 20141002
  Serious: Yes (Hospitalization)
  Sender: FDA-Public Use
  Company Number: US-GLAXOSMITHKLINE-A1055026A

PATIENT
  Age: 50 Year
  Sex: Male

DRUGS (1)
  1. VOTRIENT [Suspect]
     Indication: HEPATOBILIARY CANCER IN SITU
     Dosage: 800MG PER DAY
     Route: 065

REACTIONS (4)
  - Pulmonary embolism [Unknown]
  - Tumour excision [Unknown]
  - Hair colour changes [Unknown]
  - Treatment noncompliance [Unknown]
